FAERS Safety Report 4908088-6 (Version None)
Quarter: 2006Q1

REPORT INFORMATION
  Report Type: 
  Country: None (occurrence: None)
  Receive Date: 20060210
  Receipt Date: 20060202
  Transmission Date: 20060701
  Serious: Yes (Hospitalization)
  Sender: FDA-Public Use
  Company Number: 2006SE00664

PATIENT
  Age: 54 Year
  Sex: Female

DRUGS (7)
  1. PLENDIL [Suspect]
     Indication: HYPERTENSION
     Route: 048
     Dates: end: 20051223
  2. FUROSEMIDE [Suspect]
     Indication: HYPERTENSION
     Route: 048
  3. MIRTAZAPINE [Suspect]
     Route: 048
  4. DUROFERON [Concomitant]
     Route: 048
  5. INHIBACE [Concomitant]
     Route: 048
  6. TROMBYL [Concomitant]
     Route: 048
  7. KALCIDON [Concomitant]
     Route: 048

REACTIONS (3)
  - CONVULSION [None]
  - HYPOTENSION [None]
  - ORTHOSTATIC HYPOTENSION [None]
